FAERS Safety Report 15180877 (Version 1)
Quarter: 2018Q3

REPORT INFORMATION
  Report Type: Spontaneous
  Country: IT (occurrence: US)
  Receive Date: 20180723
  Receipt Date: 20180723
  Transmission Date: 20181010
  Serious: Yes (Hospitalization)
  Sender: FDA-Public Use
  Company Number: IT-MYLANLABS-2018M1054612

PATIENT
  Age: 78 Year
  Sex: Female
  Weight: 109 kg

DRUGS (3)
  1. WARFARIN MYLAN [Interacting]
     Active Substance: WARFARIN
     Indication: PRODUCT USED FOR UNKNOWN INDICATION
     Dosage: UNK
     Route: 065
  2. INFLUENZA VACCINE INACT [Interacting]
     Active Substance: INFLUENZA VIRUS VACCINE
     Indication: IMMUNISATION
     Dosage: UNK
     Route: 065
  3. CLOPIDOGREL [Suspect]
     Active Substance: CLOPIDOGREL BISULFATE
     Indication: PRODUCT USED FOR UNKNOWN INDICATION
     Dosage: UNK
     Route: 065

REACTIONS (6)
  - Pain in extremity [Unknown]
  - Haematoma [Unknown]
  - Anaemia [Unknown]
  - Peripheral swelling [Unknown]
  - Ecchymosis [Unknown]
  - Drug interaction [Unknown]
